FAERS Safety Report 8674990 (Version 3)
Quarter: 2012Q4

REPORT INFORMATION
  Report Type: 
  Country: SE (occurrence: SE)
  Receive Date: 20120720
  Receipt Date: 20120918
  Transmission Date: 20130627
  Serious: Yes (Hospitalization, Other)
  Sender: FDA-Public Use
  Company Number: SE-PFIZER INC-2012167482

PATIENT
  Age: 53 Year
  Sex: Female

DRUGS (16)
  1. SOLU-CORTEF [Suspect]
     Dosage: UNK
     Route: 042
     Dates: start: 20120412
  2. ALVEDON [Concomitant]
     Dosage: UNK
  3. KALCIPOS-D [Concomitant]
     Dosage: UNK
  4. MOVICOL [Concomitant]
     Dosage: UNK
  5. OMEPRAZOL [Concomitant]
     Dosage: UNK
  6. SIMVASTATIN [Concomitant]
     Dosage: UNK
  7. LACTULOSE [Concomitant]
     Dosage: UNK
  8. ATARAX [Concomitant]
     Dosage: UNK
  9. ALENDRONAT ACCORD [Concomitant]
     Dosage: UNK
  10. FRAGMIN [Concomitant]
     Dosage: UNK
  11. STESOLID [Concomitant]
     Dosage: UNK
  12. INDERAL - SLOW RELEASE [Concomitant]
     Dosage: UNK
  13. DAKTACORT [Concomitant]
     Dosage: UNK
  14. STILNOCT [Concomitant]
     Dosage: UNK
  15. PREDNISOLON [Concomitant]
     Dosage: UNK
  16. OXYCONTIN [Concomitant]
     Dosage: UNK

REACTIONS (4)
  - Leukocytosis [Recovered/Resolved]
  - Deep vein thrombosis [Unknown]
  - Haematochezia [Unknown]
  - C-reactive protein increased [Recovered/Resolved]
